FAERS Safety Report 5255228-8 (Version None)
Quarter: 2007Q1

REPORT INFORMATION
  Report Type: 
  Country: None (occurrence: None)
  Receive Date: 20070228
  Receipt Date: 20070212
  Transmission Date: 20070707
  Serious: Yes (Other)
  Sender: FDA-Public Use
  Company Number: 2007000279

PATIENT
  Sex: Female

DRUGS (1)
  1. TARCEVA [Suspect]
     Indication: SARCOMA
     Dosage: ORAL
     Route: 048
     Dates: start: 20070123

REACTIONS (2)
  - HAEMOPTYSIS [None]
  - PLATELET COUNT DECREASED [None]
